FAERS Safety Report 10692877 (Version 2)
Quarter: 2015Q2

REPORT INFORMATION
  Report Type: Spontaneous
  Country: US (occurrence: US)
  Receive Date: 20150106
  Receipt Date: 20150406
  Transmission Date: 20150821
  Serious: Yes (Hospitalization, Other)
  Sender: FDA-Public Use
  Company Number: US-JNJFOC-20141218639

PATIENT
  Sex: Male
  Weight: 88.45 kg

DRUGS (15)
  1. DURAGESIC [Suspect]
     Active Substance: FENTANYL
     Indication: FLANK PAIN
     Route: 062
     Dates: start: 2010
  2. DURAGESIC [Suspect]
     Active Substance: FENTANYL
     Indication: HEPATITIS C
     Dosage: 15UG/HR
     Route: 062
     Dates: start: 2004
  3. LYRICA [Concomitant]
     Active Substance: PREGABALIN
     Indication: NEUROPATHY PERIPHERAL
     Route: 065
     Dates: end: 2015
  4. DURAGESIC [Suspect]
     Active Substance: FENTANYL
     Indication: BACK PAIN
     Route: 062
     Dates: start: 2010
  5. DURAGESIC [Suspect]
     Active Substance: FENTANYL
     Indication: FLANK PAIN
     Route: 062
  6. DURAGESIC [Suspect]
     Active Substance: FENTANYL
     Indication: HEPATITIS C
     Route: 062
  7. DURAGESIC [Suspect]
     Active Substance: FENTANYL
     Indication: FLANK PAIN
     Dosage: 15UG/HR
     Route: 062
     Dates: start: 2004
  8. DURAGESIC [Suspect]
     Active Substance: FENTANYL
     Indication: BACK PAIN
     Dosage: 15UG/HR
     Route: 062
     Dates: start: 2004
  9. DURAGESIC [Suspect]
     Active Substance: FENTANYL
     Indication: BACK PAIN
     Route: 062
  10. DURAGESIC [Suspect]
     Active Substance: FENTANYL
     Indication: BACK PAIN
     Dosage: 15UG/HR
     Route: 062
     Dates: start: 2001, end: 2010
  11. DURAGESIC [Suspect]
     Active Substance: FENTANYL
     Indication: HEPATITIS C
     Route: 062
     Dates: start: 2010
  12. DURAGESIC [Suspect]
     Active Substance: FENTANYL
     Indication: HEPATITIS C
     Dosage: 15UG/HR
     Route: 062
     Dates: start: 2001, end: 2010
  13. DURAGESIC [Suspect]
     Active Substance: FENTANYL
     Indication: FLANK PAIN
     Dosage: 15UG/HR
     Route: 062
     Dates: start: 2001, end: 2010
  14. XANAX [Concomitant]
     Active Substance: ALPRAZOLAM
     Indication: SLEEP DISORDER
     Dosage: HALF TABLET TO GO TO SLEEP
     Route: 065
  15. SPIRONOLACTONE. [Concomitant]
     Active Substance: SPIRONOLACTONE
     Indication: FLUID RETENTION
     Dosage: ONE IN MORNING AND ONE IN THE EVENING
     Route: 065
     Dates: start: 2013

REACTIONS (11)
  - Loss of consciousness [Recovered/Resolved]
  - Inappropriate schedule of drug administration [Not Recovered/Not Resolved]
  - Drug dose omission [Unknown]
  - Vomiting [Unknown]
  - Fall [Unknown]
  - Body height decreased [Unknown]
  - Chronic lymphocytic leukaemia [Not Recovered/Not Resolved]
  - Wrong technique in drug usage process [Unknown]
  - Fatigue [Unknown]
  - Cough [Not Recovered/Not Resolved]
  - Insomnia [Not Recovered/Not Resolved]

NARRATIVE: CASE EVENT DATE: 2009
